FAERS Safety Report 6569145-4 (Version None)
Quarter: 2010Q1

REPORT INFORMATION
  Report Type: 
  Country: None (occurrence: None)
  Receive Date: 20100201
  Receipt Date: 20100201
  Transmission Date: 20100710
  Serious: Yes (Hospitalization)
  Sender: FDA-Public Use
  Company Number: None

PATIENT
  Age: 65 Year
  Sex: Male
  Weight: 73.9 kg

DRUGS (2)
  1. DOXYCYCLINE [Suspect]
     Indication: CELLULITIS
     Dosage: 100 MG OTHER PO
     Route: 048
     Dates: start: 20100111, end: 20100120
  2. DOXYCYCLINE [Suspect]
     Indication: STAPHYLOCOCCAL INFECTION
     Dosage: 100 MG OTHER PO
     Route: 048
     Dates: start: 20100111, end: 20100120

REACTIONS (1)
  - RASH [None]
